FAERS Safety Report 9416876 (Version 2)
Quarter: 2013Q3

REPORT INFORMATION
  Report Type: Report from Study
  Country: US (occurrence: US)
  Receive Date: 20130724
  Receipt Date: 20130820
  Transmission Date: 20140515
  Serious: Yes (Hospitalization)
  Sender: FDA-Public Use
  Company Number: US-SANOFI-AVENTIS-2013SA073699

PATIENT
  Age: 54 Year
  Sex: Female

DRUGS (8)
  1. AUBAGIO [Suspect]
     Indication: MULTIPLE SCLEROSIS
     Route: 048
     Dates: start: 20130714, end: 20130717
  2. OMEPRAZOLE [Concomitant]
     Route: 065
  3. LISINOPRIL [Concomitant]
     Route: 048
  4. BACLOFEN [Concomitant]
     Route: 048
  5. BACTRIM DS [Concomitant]
     Dosage: 800 TO 160 MG
     Route: 065
  6. VESICARE [Concomitant]
     Route: 065
  7. ENABLEX [Concomitant]
     Route: 065
  8. TYLENOL [Concomitant]
     Indication: PAIN
     Route: 048

REACTIONS (1)
  - Convulsion [Recovered/Resolved]
